FAERS Safety Report 6490977-5 (Version None)
Quarter: 2009Q4

REPORT INFORMATION
  Report Type: 
  Country: None (occurrence: None)
  Receive Date: 20091211
  Receipt Date: 20091209
  Transmission Date: 20100525
  Serious: Yes (Death)
  Sender: FDA-Public Use
  Company Number: ES-ROCHE-659152

PATIENT
  Sex: Male
  Weight: 65 kg

DRUGS (5)
  1. BEVACIZUMAB [Suspect]
     Dosage: FORM: INFUSION, LAST DOSE PRIOR TO SAE ON 05 AUGUST 2009. 7.5 MG/KG/Q3W.
     Route: 042
     Dates: start: 20070327
  2. CAPECITABINE [Suspect]
     Dosage: LAST DOSE PRIOR TO SAE ON 15 AUGUST 2007, TAKEN ON DAY 1-14 Q3W. 200 MG/M2.
     Route: 048
     Dates: start: 20070327
  3. OXALIPLATIN [Suspect]
     Dosage: FORM: INFUSION, LAST DOSE PRIOR TO SAE ON 01 AUGUST 2007. 130MG/M2/Q3W.
     Route: 042
     Dates: start: 20070327
  4. DEXAMETASON [Concomitant]
     Dosage: DRUG: DEXAMETASONE.
     Dates: start: 20070327, end: 20090805
  5. GRANISETRON HCL [Concomitant]
     Dates: start: 20070327, end: 20090805

REACTIONS (1)
  - CARDIOGENIC SHOCK [None]
